FAERS Safety Report 23145827 (Version 2)
Quarter: 2023Q4

REPORT INFORMATION
  Report Type: Other
  Country: GB (occurrence: None)
  Receive Date: 20231103
  Receipt Date: 20231123
  Transmission Date: 20240109
  Serious: Yes (Other)
  Sender: FDA-Public Use
  Company Number: GB-ROCHE-2732896

PATIENT
  Sex: Female

DRUGS (3)
  1. TOCILIZUMAB [Suspect]
     Active Substance: TOCILIZUMAB
     Indication: Rheumatoid arthritis
     Route: 058
     Dates: start: 2018
  2. TOCILIZUMAB [Suspect]
     Active Substance: TOCILIZUMAB
     Route: 058
     Dates: start: 20190924
  3. NAPROXEN [Concomitant]
     Active Substance: NAPROXEN
     Indication: Analgesic therapy

REACTIONS (3)
  - Gastrointestinal haemorrhage [Unknown]
  - Eye infection [Not Recovered/Not Resolved]
  - COVID-19 [Unknown]
